FAERS Safety Report 14941330 (Version 1)
Quarter: 2018Q2

REPORT INFORMATION
  Report Type: Spontaneous
  Country: FR (occurrence: FR)
  Receive Date: 20180526
  Receipt Date: 20180526
  Transmission Date: 20180711
  Serious: Yes (Hospitalization)
  Sender: FDA-Public Use
  Company Number: FR-TEVA-2018-FR-897224

PATIENT
  Age: 53 Year
  Sex: Female

DRUGS (2)
  1. ZOVIRAX [Suspect]
     Active Substance: ACYCLOVIR
     Indication: VARICELLA
     Route: 042
     Dates: start: 20180207, end: 20180212
  2. PANTOPRAZOLE [Suspect]
     Active Substance: PANTOPRAZOLE
     Indication: PROPHYLAXIS
     Route: 048
     Dates: start: 20180209

REACTIONS (2)
  - Eosinophilia [Recovering/Resolving]
  - Toxic skin eruption [Recovered/Resolved]

NARRATIVE: CASE EVENT DATE: 20180212
